FAERS Safety Report 8082706-9 (Version None)
Quarter: 2012Q1

REPORT INFORMATION
  Report Type: 
  Country: None (occurrence: None)
  Receive Date: 20120127
  Receipt Date: 20110224
  Transmission Date: 20120608
  Serious: No
  Sender: FDA-Public Use
  Company Number: US-ABBOTT-11P-163-0708375-00

PATIENT
  Sex: Female
  Weight: 61.29 kg

DRUGS (5)
  1. HUMIRA [Suspect]
     Dosage: 2ND LOADING DOSE
     Route: 058
     Dates: start: 20110118, end: 20110118
  2. HUMIRA [Suspect]
     Route: 058
     Dates: start: 20110201
  3. ORTHO-NOVUM [Concomitant]
     Indication: CONTRACEPTION
  4. HUMIRA [Suspect]
     Indication: CROHN'S DISEASE
     Dosage: FIRST LOADING DOSE
     Route: 058
     Dates: start: 20110117, end: 20110117
  5. PENTASA [Concomitant]
     Indication: CROHN'S DISEASE

REACTIONS (2)
  - METRORRHAGIA [None]
  - MENSTRUATION DELAYED [None]
